FAERS Safety Report 6141077-5 (Version None)
Quarter: 2009Q2

REPORT INFORMATION
  Report Type: 
  Country: None (occurrence: None)
  Receive Date: 20090402
  Receipt Date: 20090323
  Transmission Date: 20091009
  Serious: Yes (Other)
  Sender: FDA-Public Use
  Company Number: BR-ABBOTT-09P-020-0563854-00

PATIENT
  Age: 23 Year
  Sex: Female

DRUGS (4)
  1. BIPERIDEN HYDROCHLORIDE TAB [Suspect]
     Indication: DEPRESSION
     Route: 048
     Dates: start: 20090318
  2. BIPERIDEN HYDROCHLORIDE TAB [Suspect]
     Indication: PANIC DISORDER
  3. AMPLICTIL [Concomitant]
     Indication: DEPRESSION
     Route: 048
     Dates: start: 20090318
  4. HALOPERIDOL [Concomitant]
     Indication: DEPRESSION
     Route: 048
     Dates: start: 20090318

REACTIONS (2)
  - SHOCK [None]
  - SYNCOPE [None]
